FAERS Safety Report 25023468 (Version 1)
Quarter: 2025Q1

REPORT INFORMATION
  Report Type: Spontaneous
  Country: US (occurrence: US)
  Receive Date: 20250228
  Receipt Date: 20250228
  Transmission Date: 20250409
  Serious: Yes (Hospitalization)
  Sender: RIGEL PHARMACEUTICALS
  Company Number: US-RIGEL Pharmaceuticals, INC-20250100199

PATIENT
  Sex: Female

DRUGS (2)
  1. TAVALISSE [Suspect]
     Active Substance: FOSTAMATINIB
     Indication: Immune thrombocytopenia
     Dosage: 100 MG, BID
     Route: 048
     Dates: start: 20250129
  2. TAVALISSE [Suspect]
     Active Substance: FOSTAMATINIB
     Route: 048

REACTIONS (7)
  - Hepatitis [Unknown]
  - Abdominal pain upper [Unknown]
  - Arthralgia [Unknown]
  - Pain in extremity [Unknown]
  - Liver disorder [Unknown]
  - Fatigue [Unknown]
  - Blood pressure increased [Unknown]
